FAERS Safety Report 8500079-1 (Version None)
Quarter: 2012Q3

REPORT INFORMATION
  Report Type: 
  Country: None (occurrence: None)
  Receive Date: 20120710
  Receipt Date: 20120621
  Transmission Date: 20120928
  Serious: No
  Sender: FDA-Public Use
  Company Number: US-ASTRAZENECA-2012SE41785

PATIENT
  Sex: Male

DRUGS (1)
  1. NEXIUM [Suspect]
     Indication: GASTROOESOPHAGEAL REFLUX DISEASE
     Dosage: BID, 30 MINUTES BEFORE BREAKFAST AND 30 MINUTES BEFORE DINNER
     Route: 048

REACTIONS (2)
  - OFF LABEL USE [None]
  - SENSATION OF FOREIGN BODY [None]
